FAERS Safety Report 13025143 (Version 1)
Quarter: 2016Q4

REPORT INFORMATION
  Report Type: Spontaneous
  Country: IN (occurrence: IN)
  Receive Date: 20161214
  Receipt Date: 20161214
  Transmission Date: 20170207
  Serious: No
  Sender: FDA-Public Use
  Company Number: IN-NOVEL LABORATORIES, INC-E2B_00006156

PATIENT
  Age: 35 Year
  Sex: Male

DRUGS (2)
  1. VORITROL 200 TAB [Suspect]
     Active Substance: VORICONAZOLE
     Indication: FUNGAL INFECTION
     Route: 048
     Dates: start: 20160823, end: 20160829
  2. M-CIN [Concomitant]
     Active Substance: MOXIFLOXACIN HYDROCHLORIDE
     Indication: TUBERCULOSIS
     Route: 048
     Dates: start: 2015

REACTIONS (5)
  - Alanine aminotransferase increased [Unknown]
  - Vomiting [Unknown]
  - Blood urea increased [Unknown]
  - Blood creatinine increased [Unknown]
  - Aspartate aminotransferase increased [Unknown]

NARRATIVE: CASE EVENT DATE: 20160828
